FAERS Safety Report 9527161 (Version 1)
Quarter: 2013Q3

REPORT INFORMATION
  Report Type: Report from Study
  Country: JP (occurrence: JP)
  Receive Date: 20130916
  Receipt Date: 20130916
  Transmission Date: 20140515
  Serious: Yes (Death)
  Sender: FDA-Public Use
  Company Number: JP-TAKEDA-2013TJP000810

PATIENT
  Sex: Male
  Weight: 64 kg

DRUGS (8)
  1. ALOGLIPTIN [Suspect]
  2. NESINA [Suspect]
     Indication: TYPE 2 DIABETES MELLITUS
     Route: 048
     Dates: start: 20101129, end: 2012
  3. BLOPRESS [Concomitant]
     Route: 048
     Dates: start: 20101129
  4. TAKEPRON OD [Concomitant]
     Route: 048
     Dates: start: 20110218, end: 20110428
  5. AMARYL [Concomitant]
     Indication: TYPE 2 DIABETES MELLITUS
     Route: 048
     Dates: start: 20101129
  6. ATELEC [Concomitant]
     Route: 048
     Dates: start: 20101129
  7. PROMAC [Concomitant]
     Route: 048
     Dates: start: 20110218
  8. ALLEGRA [Concomitant]
     Route: 048
     Dates: start: 20110304, end: 20110428

REACTIONS (1)
  - Death [Fatal]
